FAERS Safety Report 4708796-6 (Version None)
Quarter: 2005Q3

REPORT INFORMATION
  Report Type: 
  Country: None (occurrence: None)
  Receive Date: 20050705
  Receipt Date: 20050628
  Transmission Date: 20060218
  Serious: Yes (Hospitalization)
  Sender: FDA-Public Use
  Company Number: 2005-06-1968

PATIENT
  Age: 79 Year
  Sex: Female

DRUGS (5)
  1. AERIUS (DESLORATADINE)  ^LIKE CLARINEX^ [Suspect]
     Indication: ALLERGIC COUGH
     Dosage: ORAL
     Route: 048
     Dates: start: 20050527, end: 20050530
  2. NEO-CODION (CODEINE CAMSYLATE/POTASSIUM GUAIACOLSULF [Suspect]
     Dosage: ORAL
     Route: 048
     Dates: end: 20050101
  3. VASTAREL [Concomitant]
  4. DAFLON [Concomitant]
  5. CLIMAXOL [Concomitant]

REACTIONS (3)
  - CARDIAC FAILURE [None]
  - DRUG INTERACTION [None]
  - LOSS OF CONSCIOUSNESS [None]
